FAERS Safety Report 19206262 (Version 1)
Quarter: 2021Q2

REPORT INFORMATION
  Report Type: Spontaneous
  Country: CH (occurrence: CH)
  Receive Date: 20210503
  Receipt Date: 20210503
  Transmission Date: 20210717
  Serious: Yes (Other)
  Sender: FDA-Public Use
  Company Number: CH-LUPIN PHARMACEUTICALS INC.-2021-05912

PATIENT
  Age: 11 Year
  Sex: Male

DRUGS (18)
  1. ANAKINRA [Suspect]
     Active Substance: ANAKINRA
     Indication: COVID-19
     Dosage: 1.3 MILLIGRAM/KILOGRAM,2 DOSES ? STARTED ON DAY 2
     Route: 058
  2. CEFTRIAXONE. [Suspect]
     Active Substance: CEFTRIAXONE
     Indication: ANTIBIOTIC THERAPY
  3. IMMUNOGLOBULINS NOS [Suspect]
     Active Substance: IMMUNE GLOBULIN NOS
     Indication: MULTISYSTEM INFLAMMATORY SYNDROME IN CHILDREN
  4. ASPIRIN [ACETYLSALICYLIC ACID] [Suspect]
     Active Substance: ASPIRIN
     Indication: MULTISYSTEM INFLAMMATORY SYNDROME IN CHILDREN
  5. HYDROXYCHLOROQUINE [Suspect]
     Active Substance: HYDROXYCHLOROQUINE
     Indication: COVID-19
  6. IMMUNOGLOBULINS NOS [Suspect]
     Active Substance: IMMUNE GLOBULIN NOS
     Indication: COVID-19
     Dosage: 2 GRAM PER KILOGRAM, (ON DAY 1)
     Route: 042
  7. TOCILIZUMAB. [Suspect]
     Active Substance: TOCILIZUMAB
     Indication: MULTISYSTEM INFLAMMATORY SYNDROME IN CHILDREN
  8. NORADRENALINE (NORPINEPHRINE) [Concomitant]
     Active Substance: NOREPINEPHRINE
     Indication: DRUG THERAPY
     Dosage: UNK
     Route: 065
  9. METHYLPREDNISOLONE. [Suspect]
     Active Substance: METHYLPREDNISOLONE
     Indication: MULTISYSTEM INFLAMMATORY SYNDROME IN CHILDREN
     Dosage: 2 MILLIGRAM/KILOGRAM, QD, (ON DAY 1)
     Route: 051
  10. ANAKINRA [Suspect]
     Active Substance: ANAKINRA
     Indication: MULTISYSTEM INFLAMMATORY SYNDROME IN CHILDREN
  11. ASPIRIN [ACETYLSALICYLIC ACID] [Suspect]
     Active Substance: ASPIRIN
     Indication: COVID-19
     Dosage: UNK
     Route: 065
  12. VASOPRESSIN. [Concomitant]
     Active Substance: VASOPRESSIN
     Indication: DRUG THERAPY
     Dosage: UNK
     Route: 065
  13. MILRINONE [Concomitant]
     Active Substance: MILRINONE
     Indication: DRUG THERAPY
     Dosage: UNK
     Route: 065
  14. METHYLPREDNISOLONE. [Suspect]
     Active Substance: METHYLPREDNISOLONE
     Indication: COVID-19
  15. HYDROXYCHLOROQUINE [Suspect]
     Active Substance: HYDROXYCHLOROQUINE
     Indication: MULTISYSTEM INFLAMMATORY SYNDROME IN CHILDREN
     Dosage: 5 MILLIGRAM/KILOGRAM,1 DOSE ?STARTED ON DAY 3
     Route: 065
  16. TOCILIZUMAB. [Suspect]
     Active Substance: TOCILIZUMAB
     Indication: COVID-19
     Dosage: 8 MILLIGRAM/KILOGRAM,(1 DOSE ? STARTED ON DAY 3)
     Route: 065
  17. DOBUTAMINE [Concomitant]
     Active Substance: DOBUTAMINE HYDROCHLORIDE
     Indication: DRUG THERAPY
     Dosage: UNK
     Route: 065
  18. CEFTRIAXONE. [Suspect]
     Active Substance: CEFTRIAXONE
     Indication: COVID-19
     Dosage: UNK
     Route: 065

REACTIONS (1)
  - Off label use [Unknown]
